FAERS Safety Report 25075199 (Version 2)
Quarter: 2025Q1

REPORT INFORMATION
  Report Type: Report from Study
  Country: CA (occurrence: CA)
  Receive Date: 20250313
  Receipt Date: 20250324
  Transmission Date: 20250409
  Serious: No
  Sender: TAKEDA
  Company Number: CA-TAKEDA-2025TUS024614

PATIENT
  Age: 33 Year
  Sex: Female

DRUGS (5)
  1. VEDOLIZUMAB [Suspect]
     Active Substance: VEDOLIZUMAB
     Indication: Colitis ulcerative
  2. VEDOLIZUMAB [Suspect]
     Active Substance: VEDOLIZUMAB
     Dosage: 300 MILLIGRAM, Q4WEEKS
     Dates: start: 20231130
  3. CITALOPRAM [Concomitant]
     Active Substance: CITALOPRAM
  4. QUETIAPINE [Concomitant]
     Active Substance: QUETIAPINE
  5. POTASSIUM [Concomitant]
     Active Substance: POTASSIUM

REACTIONS (6)
  - Off label use [Unknown]
  - Pregnancy [Recovered/Resolved]
  - Malaise [Unknown]
  - Feeling guilty [Unknown]
  - Depressed mood [Unknown]
  - Illness [Unknown]

NARRATIVE: CASE EVENT DATE: 20231130
